FAERS Safety Report 5532973-8 (Version None)
Quarter: 2007Q4

REPORT INFORMATION
  Report Type: 
  Country: None (occurrence: None)
  Receive Date: 20071129
  Receipt Date: 20071129
  Transmission Date: 20080405
  Serious: Yes (Death)
  Sender: FDA-Public Use
  Company Number: None

PATIENT
  Sex: Male
  Weight: 95 kg

DRUGS (3)
  1. FLUDARABINE PHOSPHATE [Suspect]
     Indication: CHRONIC MYELOMONOCYTIC LEUKAEMIA
     Dosage: 65 DAILY TIMES 5 IV
     Route: 042
     Dates: start: 20060906, end: 20060910
  2. BUSULFAN [Suspect]
     Dosage: 400 X2, 651 TIMES 2 FOUR IV
     Route: 042
     Dates: start: 20060907, end: 20060910
  3. CAMPATH [Concomitant]

REACTIONS (6)
  - ACUTE GRAFT VERSUS HOST DISEASE IN INTESTINE [None]
  - ACUTE GRAFT VERSUS HOST DISEASE IN SKIN [None]
  - BACTERAEMIA [None]
  - RENAL FAILURE [None]
  - RESPIRATORY DISORDER [None]
  - URINARY TRACT INFECTION ENTEROCOCCAL [None]
